FAERS Safety Report 24955668 (Version 9)
Quarter: 2025Q4

REPORT INFORMATION
  Report Type: Report from Study
  Country: US (occurrence: None)
  Receive Date: 20250211
  Receipt Date: 20251020
  Transmission Date: 20260118
  Serious: Yes (Hospitalization, Other)
  Sender: UCB
  Company Number: US-UCBSA-2024061712

PATIENT
  Weight: 42.3 kg

DRUGS (17)
  1. FENFLURAMINE [Suspect]
     Active Substance: FENFLURAMINE
     Indication: Lennox-Gastaut syndrome
     Dosage: 5.8 MILLILITER, 2X/DAY (BID)
  2. FENFLURAMINE [Suspect]
     Active Substance: FENFLURAMINE
     Indication: Seizure
     Dosage: 5 MILLILITER, 2X/DAY (BID)
  3. FENFLURAMINE [Suspect]
     Active Substance: FENFLURAMINE
     Dosage: 22 MG/DAY
  4. FENFLURAMINE [Suspect]
     Active Substance: FENFLURAMINE
     Dosage: 2.2MG/ML SOLUTION, 5 ORAL TWO TIMES DAILY (VIA TUBE)
  5. FENFLURAMINE [Suspect]
     Active Substance: FENFLURAMINE
     Dosage: 5 MILLILITER, 2X/DAY (BID)
  6. FENFLURAMINE [Suspect]
     Active Substance: FENFLURAMINE
     Dosage: 5 MILLILITER, 2X/DAY (BID)
  7. FENFLURAMINE [Suspect]
     Active Substance: FENFLURAMINE
     Dosage: 5 MILLILITER, 2X/DAY (BID)
  8. FENFLURAMINE [Suspect]
     Active Substance: FENFLURAMINE
     Dosage: 5 MILLILITER, 2X/DAY (BID)
  9. NAYZILAM [Suspect]
     Active Substance: MIDAZOLAM
     Indication: Seizure
     Dosage: 5 MG/SPRAY(0.1 ML) SPRAY, NON-AERO, 1 (ONE) SPRAY
  10. DEPAKOTE [Concomitant]
     Active Substance: DIVALPROEX SODIUM
     Indication: Product used for unknown indication
  11. BANZEL [Concomitant]
     Active Substance: RUFINAMIDE
     Indication: Product used for unknown indication
     Dosage: 2400 MILLIGRAM PER DAY DIVIDED TWICE DAILY
  12. BANZEL [Concomitant]
     Active Substance: RUFINAMIDE
     Dosage: 400MG TABLET, 3 TABS TABLET ORAL TWO TIMES DAILY
  13. EPIDIOLEX [Concomitant]
     Active Substance: CANNABIDIOL
     Indication: Product used for unknown indication
     Dosage: 22 MILLIGRAM PER KILOGRAM PER DAY
  14. EPIDIOLEX [Concomitant]
     Active Substance: CANNABIDIOL
     Dosage: 5 MILLILITER, 2X/DAY (BID)
  15. CLONIDINE HYDROCHLORIDE [Concomitant]
     Active Substance: CLONIDINE HYDROCHLORIDE
     Indication: Product used for unknown indication
     Dosage: 0.1MG TABLET, 1 (ONE) ORAL QAM, 1 TAB MIDDAY, 1 TAB PRN, 2 TABS QHS,
  16. BENZTROPINE [Concomitant]
     Active Substance: BENZTROPINE
     Indication: Dystonia
     Dosage: 1 MILLIGRAM, 2X/DAY (BID)
  17. valprolc acid [Concomitant]
     Indication: Product used for unknown indication
     Dosage: 15 MILLILITER, 3X/DAY (TID)

REACTIONS (17)
  - Hyperkalaemia [Recovered/Resolved]
  - Seizure [Not Recovered/Not Resolved]
  - Medical device battery replacement [Not Recovered/Not Resolved]
  - Device dislocation [Unknown]
  - Encephalopathy [Unknown]
  - Nausea [Recovered/Resolved]
  - Agitation [Not Recovered/Not Resolved]
  - Behaviour disorder [Not Recovered/Not Resolved]
  - Gastrointestinal disorder [Not Recovered/Not Resolved]
  - Atonic seizures [Recovered/Resolved]
  - Sleep disorder [Unknown]
  - Feeling abnormal [Unknown]
  - Akathisia [Unknown]
  - Dyskinesia [Unknown]
  - Weight decreased [Not Recovered/Not Resolved]
  - Illness [Unknown]
  - Product dose omission issue [Unknown]
